FAERS Safety Report 4816874-6 (Version None)
Quarter: 2005Q4

REPORT INFORMATION
  Report Type: 
  Country: None (occurrence: None)
  Receive Date: 20051031
  Receipt Date: 20051031
  Transmission Date: 20060501
  Serious: Yes (Hospitalization)
  Sender: FDA-Public Use
  Company Number: None

PATIENT
  Age: 63 Year
  Sex: Male

DRUGS (4)
  1. VALSARTAN [Suspect]
     Indication: HYPERTENSION
     Dosage: 80 MG QD
     Dates: start: 20041101
  2. VIAGRA [Concomitant]
  3. HYDRALAZINE [Concomitant]
  4. NIFEDIPINE [Concomitant]

REACTIONS (1)
  - HYPERKALAEMIA [None]
